FAERS Safety Report 7636660-1 (Version None)
Quarter: 2011Q3

REPORT INFORMATION
  Report Type: 
  Country: None (occurrence: None)
  Receive Date: 20110726
  Receipt Date: 20110715
  Transmission Date: 20111222
  Serious: No
  Sender: FDA-Public Use
  Company Number: US-BIOGENIDEC-2011BI026717

PATIENT
  Age: 58 Year
  Sex: Female

DRUGS (2)
  1. KLONOPIN [Concomitant]
     Indication: ANXIETY
  2. TYSABRI [Suspect]
     Indication: MULTIPLE SCLEROSIS
     Route: 042
     Dates: start: 20091229

REACTIONS (2)
  - ANXIETY [None]
  - SYSTEMIC LUPUS ERYTHEMATOSUS [None]
